FAERS Safety Report 7096065-1 (Version None)
Quarter: 2010Q4

REPORT INFORMATION
  Report Type: 
  Country: None (occurrence: None)
  Receive Date: 20101111
  Receipt Date: 20090602
  Transmission Date: 20110411
  Serious: No
  Sender: FDA-Public Use
  Company Number: US-KINGPHARMUSA00001-K200900663

PATIENT
  Age: 46 Year
  Sex: Female
  Weight: 74.83 kg

DRUGS (2)
  1. BICILLIN L-A [Suspect]
     Indication: LYME DISEASE
     Dosage: UNK, ONCE WEEKLY
     Route: 030
     Dates: start: 20080201
  2. MINOCYCLINE HCL [Concomitant]
     Indication: LYME DISEASE
     Dosage: UNK

REACTIONS (1)
  - INJECTION SITE NODULE [None]
